FAERS Safety Report 14909962 (Version 2)
Quarter: 2018Q2

REPORT INFORMATION
  Report Type: Spontaneous
  Country: ES (occurrence: ES)
  Receive Date: 20180517
  Receipt Date: 20180531
  Transmission Date: 20180711
  Serious: Yes (Other)
  Sender: FDA-Public Use
  Company Number: ES-PFIZER INC-2018166873

PATIENT
  Age: 27 Year
  Sex: Male

DRUGS (2)
  1. PRISTIQ EXTENDED-RELEASE [Suspect]
     Active Substance: DESVENLAFAXINE SUCCINATE
     Dosage: 50 MG, UNK
  2. VANDRAL RETARD [Suspect]
     Active Substance: VENLAFAXINE HYDROCHLORIDE
     Dosage: 75 MG, 1X/DAY (0-0-1)
     Dates: start: 2015

REACTIONS (7)
  - Haemorrhage [Recovered/Resolved]
  - Cognitive disorder [Unknown]
  - Sexual dysfunction [Unknown]
  - Amnesia [Recovered/Resolved]
  - Constipation [Recovered/Resolved]
  - Tremor [Recovered/Resolved]
  - Muscle spasms [Unknown]
